FAERS Safety Report 13627914 (Version 1)
Quarter: 2017Q2

REPORT INFORMATION
  Report Type: Spontaneous
  Country: US (occurrence: US)
  Receive Date: 20170531
  Receipt Date: 20170531
  Transmission Date: 20170830
  Serious: Yes (Hospitalization)
  Sender: FDA-Public Use
  Company Number: US-ASTELLAS-1629891

PATIENT
  Sex: Female

DRUGS (8)
  1. TARCEVA [Suspect]
     Active Substance: ERLOTINIB HYDROCHLORIDE
     Indication: LUNG NEOPLASM MALIGNANT
     Route: 048
     Dates: start: 20150806
  2. TRAMADOL. [Concomitant]
     Active Substance: TRAMADOL
  3. ATENOLOL. [Concomitant]
     Active Substance: ATENOLOL
  4. AMLODIPINE [Concomitant]
     Active Substance: AMLODIPINE BESYLATE
  5. TARCEVA [Suspect]
     Active Substance: ERLOTINIB HYDROCHLORIDE
     Indication: ANAEMIA
  6. TYLENOL [Concomitant]
     Active Substance: ACETAMINOPHEN
  7. ADVAIR HFA [Concomitant]
     Active Substance: FLUTICASONE PROPIONATE\SALMETEROL XINAFOATE
  8. PREDNISONE. [Concomitant]
     Active Substance: PREDNISONE

REACTIONS (12)
  - Alopecia [Unknown]
  - Vomiting [Unknown]
  - Rash [Unknown]
  - Dry eye [Unknown]
  - Eye pruritus [Unknown]
  - Dehydration [Unknown]
  - Eye irritation [Unknown]
  - Nausea [Unknown]
  - Skin exfoliation [Unknown]
  - Diarrhoea [Unknown]
  - Ocular hyperaemia [Unknown]
  - Lip pain [Unknown]
